FAERS Safety Report 13650775 (Version 1)
Quarter: 2017Q2

REPORT INFORMATION
  Report Type: Spontaneous
  Country: US (occurrence: US)
  Receive Date: 20170614
  Receipt Date: 20170614
  Transmission Date: 20170830
  Serious: Yes (Disabling)
  Sender: FDA-Public Use
  Company Number: None

PATIENT
  Age: 81 Year
  Sex: Male
  Weight: 77.18 kg

DRUGS (10)
  1. VITAMIN B12 [Concomitant]
     Active Substance: CYANOCOBALAMIN
  2. VITAMIN D3 [Concomitant]
     Active Substance: CHOLECALCIFEROL
  3. CIPROFLOXACIN 500MG TAB [Suspect]
     Active Substance: CIPROFLOXACIN
     Indication: URINARY TRACT INFECTION
     Dosage: ?          QUANTITY:/ TIBIA/?7?;?
     Route: 048
     Dates: start: 20170513, end: 20170516
  4. COREG [Concomitant]
     Active Substance: CARVEDILOL
  5. ESTER C [Concomitant]
  6. B6 [Concomitant]
     Active Substance: PYRIDOXINE HYDROCHLORIDE
  7. COQU-10 [Concomitant]
  8. ASPIRIN. [Concomitant]
     Active Substance: ASPIRIN
  9. BRILINTA [Concomitant]
     Active Substance: TICAGRELOR
  10. LISINOPRIL. [Concomitant]
     Active Substance: LISINOPRIL

REACTIONS (10)
  - Headache [None]
  - Abdominal discomfort [None]
  - Dizziness [None]
  - Discomfort [None]
  - Muscle injury [None]
  - Contusion [None]
  - Feeling abnormal [None]
  - Weight bearing difficulty [None]
  - Tendon disorder [None]
  - Joint swelling [None]

NARRATIVE: CASE EVENT DATE: 20170515
